FAERS Safety Report 10224375 (Version 1)
Quarter: 2014Q1

REPORT INFORMATION
  Report Type: Spontaneous
  Country: US (occurrence: None)
  Receive Date: 20140306
  Receipt Date: 20140306
  Transmission Date: 20141002
  Serious: Yes (Hospitalization)
  Sender: FDA-Public Use
  Company Number: 163-21880-13093121

PATIENT
  Age: 71 Year
  Sex: Male

DRUGS (5)
  1. REVLIMID [Suspect]
     Indication: PLASMA CELL MYELOMA
     Dosage: 16.6667 MG, 14 IN 21 D, PO ??INTERRUPTED
     Route: 048
     Dates: start: 201110
  2. CENTRUM MULTIVITAMINS (CENTRUM) (UNKNOWN) [Concomitant]
  3. ALPHA LIPOIC ACID (THIOCTIC ACID) (UNKNOWN0 [Concomitant]
  4. VITAMIN B12 (CYANOCOBALAMIN) (UNKNOWN) [Concomitant]
  5. VITAMIN B1 (THIAMINE HYDROCHLORIDE) (UNKNOWN) [Concomitant]

REACTIONS (1)
  - Pain [None]
